FAERS Safety Report 9700126 (Version 3)
Quarter: 2014Q1

REPORT INFORMATION
  Report Type: Spontaneous
  Country: IT (occurrence: IT)
  Receive Date: 20131121
  Receipt Date: 20140325
  Transmission Date: 20141002
  Serious: Yes (Hospitalization)
  Sender: FDA-Public Use
  Company Number: IT-BRISTOL-MYERS SQUIBB COMPANY-19803725

PATIENT
  Age: 85 Year
  Sex: Female

DRUGS (7)
  1. COUMADIN TABS 5 MG [Suspect]
     Indication: AORTIC VALVE DISEASE
     Route: 048
     Dates: start: 20120516, end: 20130516
  2. BRUFEN [Suspect]
     Indication: ARTHRALGIA
     Route: 048
     Dates: start: 20130401, end: 20130516
  3. SIMVASTATIN [Concomitant]
     Dosage: TABS
     Route: 048
  4. LANOXIN [Concomitant]
     Dosage: .125MG TABS
     Route: 048
  5. GLUCOPHAGE [Concomitant]
     Route: 048
  6. LASIX [Concomitant]
     Dosage: TABS
     Route: 048
  7. QUARK [Concomitant]
     Dosage: 5 MG TABS
     Route: 048

REACTIONS (2)
  - Anaemia [Recovered/Resolved]
  - Haemorrhage [Unknown]
